FAERS Safety Report 8972296 (Version 1)
Quarter: 2012Q4

REPORT INFORMATION
  Report Type: Spontaneous
  Country: US (occurrence: None)
  Receive Date: 20121211
  Receipt Date: 20121211
  Transmission Date: 20130627
  Serious: Yes (Other)
  Sender: FDA-Public Use
  Company Number: AXC-2012-000577

PATIENT
  Age: 67 Year
  Sex: Female
  Weight: 65.8 kg

DRUGS (1)
  1. SUCRALFATE [Suspect]
     Indication: OESOPHAGEAL PAIN

REACTIONS (4)
  - Dyspnoea [None]
  - Wheezing [None]
  - Oropharyngeal pain [None]
  - Foreign body [None]
